FAERS Safety Report 11054781 (Version 2)
Quarter: 2015Q2

REPORT INFORMATION
  Report Type: Spontaneous
  Country: JP (occurrence: JP)
  Receive Date: 20150422
  Receipt Date: 20150504
  Transmission Date: 20150821
  Serious: Yes (Hospitalization)
  Sender: FDA-Public Use
  Company Number: JP-009507513-1504JPN018077

PATIENT
  Age: 21 Year
  Sex: Male

DRUGS (3)
  1. THERAPY UNSPECIFIED [Suspect]
     Active Substance: UNSPECIFIED INGREDIENT
     Indication: HYPOGONADISM
     Dosage: DAILY DOSE UNKNOWN
     Route: 030
  2. DESMOPRESSIN [Concomitant]
     Active Substance: DESMOPRESSIN
     Indication: DIABETES INSIPIDUS
     Dosage: DAILY DOSE UNKNOWN
     Route: 065
  3. HCG MOCHIDA [Suspect]
     Active Substance: GONADOTROPHIN, CHORIONIC
     Indication: HYPOGONADISM
     Dosage: UNK, DAILY DOSE UNKNOWN
     Route: 030

REACTIONS (1)
  - Brain teratoma [Recovering/Resolving]
